FAERS Safety Report 7531968-2 (Version None)
Quarter: 2011Q2

REPORT INFORMATION
  Report Type: 
  Country: None (occurrence: None)
  Receive Date: 20110608
  Receipt Date: 20110525
  Transmission Date: 20111010
  Serious: Yes (Death, Other)
  Sender: FDA-Public Use
  Company Number: US-CELGENEUS-163-20785-10070231

PATIENT

DRUGS (5)
  1. THALOMID [Suspect]
     Indication: MULTIPLE MYELOMA
     Dosage: 200 MILLIGRAM
     Route: 048
  2. DOXIL [Suspect]
     Indication: MULTIPLE MYELOMA
     Dosage: 20 MILLIGRAM/SQ. METER
     Route: 065
  3. BORTEZOMIB [Suspect]
     Indication: MULTIPLE MYELOMA
     Dosage: 1.3 MILLIGRAM/SQ. METER
     Route: 065
  4. WARFARIN SODIUM [Concomitant]
     Dosage: 1 OR 2 MG FOR ABSOLUTE BODY WEIGHT {70KG OR }= 70KG
     Route: 065
  5. ACYCLOVIR [Concomitant]
     Indication: HERPES ZOSTER
     Dosage: 400 MILLIGRAM
     Route: 065

REACTIONS (28)
  - THROMBOCYTOPENIA [None]
  - ANAEMIA [None]
  - LYMPHOPENIA [None]
  - DIZZINESS [None]
  - INTERSTITIAL LUNG DISEASE [None]
  - CARDIAC FAILURE CONGESTIVE [None]
  - FATIGUE [None]
  - HYPERGLYCAEMIA [None]
  - RESPIRATORY FAILURE [None]
  - NEUROPATHY PERIPHERAL [None]
  - OEDEMA [None]
  - DIARRHOEA [None]
  - DEATH [None]
  - PNEUMONIA [None]
  - NEUTROPENIA [None]
  - DYSPNOEA [None]
  - NAUSEA [None]
  - CONSTIPATION [None]
  - PALMAR-PLANTAR ERYTHRODYSAESTHESIA SYNDROME [None]
  - PLEURAL EFFUSION [None]
  - PULMONARY EMBOLISM [None]
  - FEBRILE NEUTROPENIA [None]
  - DEEP VEIN THROMBOSIS [None]
  - CONFUSIONAL STATE [None]
  - HYPERURICAEMIA [None]
  - INFECTION [None]
  - ARRHYTHMIA [None]
  - RASH [None]
